FAERS Safety Report 4712688-6 (Version None)
Quarter: 2005Q3

REPORT INFORMATION
  Report Type: 
  Country: None (occurrence: None)
  Receive Date: 20050701
  Receipt Date: 20050210
  Transmission Date: 20060218
  Serious: Yes (Death, Other)
  Sender: FDA-Public Use
  Company Number: 2003029980

PATIENT
  Age: 65 Year
  Sex: Male

DRUGS (2)
  1. ZOLOFT [Suspect]
     Indication: ANXIETY DISORDER
     Dosage: 25 MG (25 MG, 1 IN 1 D), ORAL
     Route: 048
     Dates: start: 20030610, end: 20030612
  2. ZOLPIDEM TARTRATE [Concomitant]

REACTIONS (1)
  - COMPLETED SUICIDE [None]
